FAERS Safety Report 9164903 (Version 1)
Quarter: 2013Q1

REPORT INFORMATION
  Report Type: Spontaneous
  Country: TW (occurrence: None)
  Receive Date: 20130222
  Receipt Date: 20130222
  Transmission Date: 20140127
  Serious: Yes (Hospitalization)
  Sender: FDA-Public Use
  Company Number: B0869026A

PATIENT
  Age: 23 Year
  Sex: Male

DRUGS (6)
  1. ABACAVIR SULFATE + LAMIVUDINE [Suspect]
     Indication: HIV INFECTION
  2. LOPINAVIR + RITONAVIR [Concomitant]
     Indication: HIV INFECTION
  3. MOXIFLOXACIN HCL [Concomitant]
  4. AMIKACIN [Concomitant]
  5. CLARITHROMYCIN [Concomitant]
  6. ETHAMBUTOL [Concomitant]

REACTIONS (9)
  - Immune reconstitution inflammatory syndrome [None]
  - Paraplegia [None]
  - Musculoskeletal stiffness [None]
  - Somnolence [None]
  - Muscular weakness [None]
  - Nodule [None]
  - Encephalitis [None]
  - Myelitis [None]
  - Mycobacterium avium complex infection [None]
